FAERS Safety Report 9057942 (Version 1)
Quarter: 2013Q1

REPORT INFORMATION
  Report Type: Spontaneous
  Country: US (occurrence: None)
  Receive Date: 20130204
  Receipt Date: 20130204
  Transmission Date: 20140127
  Serious: Yes (Other)
  Sender: FDA-Public Use
  Company Number: None

PATIENT
  Age: 53 Year
  Sex: Female
  Weight: 50.12 kg

DRUGS (2)
  1. ESCITALOPRAM OXALATE [Suspect]
     Indication: ANXIETY
     Route: 048
     Dates: start: 20120927, end: 20130125
  2. ESCITALOPRAM OXALATE [Suspect]
     Indication: DEPRESSION
     Route: 048
     Dates: start: 20120927, end: 20130125

REACTIONS (2)
  - Drug ineffective [None]
  - Product substitution issue [None]
